FAERS Safety Report 9811547 (Version 1)
Quarter: 2014Q1

REPORT INFORMATION
  Report Type: Spontaneous
  Country: US (occurrence: US)
  Receive Date: 20140110
  Receipt Date: 20140110
  Transmission Date: 20141002
  Serious: Yes (Death)
  Sender: FDA-Public Use
  Company Number: US-SANOFI-AVENTIS-2013SA031268

PATIENT
  Age: 70 Year
  Sex: Male
  Weight: 85.72 kg

DRUGS (6)
  1. PLAVIX [Suspect]
     Indication: PRODUCT USED FOR UNKNOWN INDICATION
  2. DILANTIN [Suspect]
     Indication: CONVULSION
     Dates: start: 1993
  3. NEURONTIN [Suspect]
     Indication: PAIN IN EXTREMITY
  4. LIPITOR [Suspect]
     Indication: BLOOD CHOLESTEROL INCREASED
  5. GLUCOTROL [Suspect]
  6. ALL OTHER THERAPEUTIC PRODUCTS [Suspect]
     Indication: BLOOD GLUCOSE

REACTIONS (2)
  - Myocardial infarction [Fatal]
  - Chest pain [Not Recovered/Not Resolved]
